FAERS Safety Report 10238896 (Version 1)
Quarter: 2014Q1

REPORT INFORMATION
  Report Type: Spontaneous
  Country: US (occurrence: None)
  Receive Date: 20140306
  Receipt Date: 20140306
  Transmission Date: 20141002
  Serious: Yes (Other)
  Sender: FDA-Public Use
  Company Number: 163-21880-13081184

PATIENT
  Age: 70 Year
  Sex: Female
  Weight: 80.7 kg

DRUGS (21)
  1. REVLIMID (LENALIDOMIDE) (10 MILLIGRAM, CAPSULES) [Suspect]
     Indication: 5Q MINUS SYNDROME
     Route: 048
     Dates: start: 20111213
  2. FLUTICASONE PROP (FLUTICASONE PROPIONATE) (SPRAY {NOT INHALATION}) [Concomitant]
  3. FUROSEMIDE (FUROSEMIDE) (TABLETS) [Concomitant]
  4. ALENDRONATE SODIUM (ALENDRONATE SODIUM) (TABLETS) [Concomitant]
  5. CARVEDILOL (CARVEDILOL) (TABLETS) [Concomitant]
  6. METOLAZONE (METOLAZONE) (TABLETS) [Concomitant]
  7. WARFARIN SODIUM (WARFARIN SODIUM) (TABLETS) [Concomitant]
  8. COMBIVENT (COMBIVENT) (INHALANT) [Concomitant]
  9. DAILY MULTIPLE VITAMIN (MULTIPLE VITAMINS) (TABLETS) [Concomitant]
  10. ASPIRIN (ACETYLSALICYLIC ACID) (CHEWABLE TABLET) [Concomitant]
  11. PREVACID DR (LANSOPRAZOLE) (CAPSULES) [Concomitant]
  12. NORCO (VICODIN) (TABLETS) [Concomitant]
  13. MICRO-K (POTASSIUM CHLORIDE) [Concomitant]
  14. NITROFURANTOIN MCR (NITROFURANTOIN) (CAPSULES) [Concomitant]
  15. LANSOPRAZOLE DR (LANSOPRAZOLE) (CAPSULES) [Concomitant]
  16. VENLAFAXINE HCL ER (VENLAFAXINE HYDROCHLORIDE) (CAPSULES) [Concomitant]
  17. SULFAMETHOXAZOLE-TMP DS (BACTRIM) (TABLETS) [Concomitant]
  18. SYMBICORT (SYMBICORT TURBUHALER ^DRACO^) (INHALANT) [Concomitant]
  19. SPIRONOLACTONE (SPIRONOLACTONE) (TABLETS) [Concomitant]
  20. ALLOPURINOL (ALLOPURINOL) (TABLETS) [Concomitant]
  21. EFFEXOR XR (VENLAFAXINE HYDROCHLORIDE) (CAPSULES) [Concomitant]

REACTIONS (2)
  - Furuncle [None]
  - Lung infection [None]
